FAERS Safety Report 13763005 (Version 1)
Quarter: 2017Q3

REPORT INFORMATION
  Report Type: Spontaneous
  Country: US (occurrence: US)
  Receive Date: 20170718
  Receipt Date: 20170718
  Transmission Date: 20171127
  Serious: Yes (Hospitalization, Other)
  Sender: FDA-Public Use
  Company Number: US-TORRENT-00003192

PATIENT
  Age: 53 Year
  Sex: Female

DRUGS (4)
  1. ATORVASTATIN [Interacting]
     Active Substance: ATORVASTATIN
  2. ACETYLSALICYLIC ACID [Interacting]
     Active Substance: ASPIRIN
  3. CLOPIDOGREL [Suspect]
     Active Substance: CLOPIDOGREL BISULFATE
  4. PANTOPRAZOLE [Interacting]
     Active Substance: PANTOPRAZOLE

REACTIONS (2)
  - Drug interaction [Unknown]
  - Hepatitis [Recovered/Resolved]
